FAERS Safety Report 8448167-2 (Version None)
Quarter: 2012Q2

REPORT INFORMATION
  Report Type: 
  Country: None (occurrence: None)
  Receive Date: 20120619
  Receipt Date: 20120613
  Transmission Date: 20120825
  Serious: Yes (Other)
  Sender: FDA-Public Use
  Company Number: JP-PFIZER INC-2009167629

PATIENT
  Age: 60 Year
  Sex: Female

DRUGS (13)
  1. DIFLUCAN [Concomitant]
     Route: 047
  2. AMPHOTERICIN B [Concomitant]
     Dosage: 0.1 %, UNK
     Route: 047
  3. ATROPINE [Concomitant]
     Route: 047
  4. CEFTAZIDIME [Concomitant]
     Route: 057
  5. FLUCONAZOLE [Concomitant]
     Dosage: 0.2 %, UNK
     Route: 047
  6. VFEND [Suspect]
     Indication: KERATITIS FUNGAL
     Dosage: 300 MG, 1X/DAY
     Route: 042
     Dates: end: 20090210
  7. ITRACONAZOLE [Concomitant]
     Dosage: 200 MG, 1X/DAY
     Route: 042
  8. ITRACONAZOLE [Concomitant]
     Dosage: 200 MG, 1X/DAY
     Route: 048
     Dates: end: 20091001
  9. LEVOFLOXACIN [Concomitant]
     Route: 047
  10. CEFMENOXIME [Concomitant]
     Route: 047
  11. VFEND [Suspect]
     Dosage: 1 %, UNK
     Route: 047
     Dates: end: 20090901
  12. OFLOXACIN [Concomitant]
     Route: 047
  13. CEFPIROME [Concomitant]
     Route: 047

REACTIONS (1)
  - PSYCHIATRIC SYMPTOM [None]
